FAERS Safety Report 6115412-8 (Version None)
Quarter: 2009Q1

REPORT INFORMATION
  Report Type: 
  Country: None (occurrence: None)
  Receive Date: 20090313
  Receipt Date: 20090311
  Transmission Date: 20090719
  Serious: Yes (Other)
  Sender: FDA-Public Use
  Company Number: RU-BRISTOL-MYERS SQUIBB COMPANY-14523484

PATIENT
  Age: 24 Year
  Sex: Male

DRUGS (1)
  1. REYATAZ [Suspect]
     Indication: HIV INFECTION
     Dosage: INTERRUPTED ON MAR08.
     Route: 048
     Dates: start: 20070929, end: 20080301

REACTIONS (3)
  - OVERDOSE [None]
  - POISONING [None]
  - TUBERCULOSIS [None]
